FAERS Safety Report 5890957-4 (Version None)
Quarter: 2008Q3

REPORT INFORMATION
  Report Type: 
  Country: None (occurrence: None)
  Receive Date: 20080918
  Receipt Date: 20080918
  Transmission Date: 20090109
  Serious: Yes (Other)
  Sender: FDA-Public Use
  Company Number: None

PATIENT
  Age: 68 Year
  Sex: Male
  Weight: 82.5547 kg

DRUGS (1)
  1. AMOXICILLIN + CLAVULANATE POTASSIUM [Suspect]
     Indication: EAR INFECTION
     Dosage: 1 TABLET DAILY PO
     Route: 048
     Dates: start: 20080523, end: 20080524

REACTIONS (2)
  - ERYTHEMA [None]
  - SKIN DISCOLOURATION [None]
